FAERS Safety Report 20852609 (Version 1)
Quarter: 2022Q2

REPORT INFORMATION
  Report Type: Spontaneous
  Country: GB (occurrence: GB)
  Receive Date: 20220520
  Receipt Date: 20220520
  Transmission Date: 20220721
  Serious: Yes (Other)
  Sender: FDA-Public Use
  Company Number: GB-MHRA-MED-202205111652258970-H7FSG

PATIENT
  Age: 40 Year
  Sex: Male

DRUGS (9)
  1. AMITRIPTYLINE [Suspect]
     Active Substance: AMITRIPTYLINE
     Dosage: 25 MILLIGRAM DAILY;  EACH NIGHT, UNIT STRENGTH:25 MG
     Route: 065
  2. AMITRIPTYLINE [Suspect]
     Active Substance: AMITRIPTYLINE
     Dosage: 50 MILLIGRAM DAILY; EACH NIGHT,UNIT STRENGTH: 50 MG
     Route: 065
  3. AMLODIPINE [Suspect]
     Active Substance: AMLODIPINE BESYLATE
     Dosage: 5 MILLIGRAM DAILY; UNIT STRENGTH: 5 MG, 5MG ONE DAILY
     Route: 065
  4. ATORVASTATIN [Suspect]
     Active Substance: ATORVASTATIN
     Dosage: 40 MILLIGRAM DAILY; UNIT STRENGTH:  40 MG, 40MG ONE DAILY;
     Route: 065
  5. CALCEOS [Suspect]
     Active Substance: CALCIUM CARBONATE\CHOLECALCIFEROL
     Dosage: 2 DOSAGE FORMS DAILY; 500MG/400UNIT, STRENGTH : 500MG/400UNIT
     Route: 065
  6. CITALOPRAM [Suspect]
     Active Substance: CITALOPRAM HYDROBROMIDE
     Dosage: 20 MILLIGRAM DAILY; UNIT STRENGTH: 20 MG
     Route: 065
  7. INDAPAMIDE [Suspect]
     Active Substance: INDAPAMIDE
     Dosage: 1.5 MILLIGRAM DAILY; EACH MORNING, UNIT STRENGTH: 1.5 MG ,
     Route: 065
  8. LANSOPRAZOLE [Suspect]
     Active Substance: LANSOPRAZOLE
     Dosage: 60 MILLIGRAM DAILY; OR AS DIRECTED BY SPECIALIST, 30MG TWICE DAILY;
     Route: 065
  9. LOSARTAN [Suspect]
     Active Substance: LOSARTAN
     Dosage: 50 MILLIGRAM DAILY;  EVERY MORNING, UNIT STRENGTH : 50 MG
     Route: 065

REACTIONS (4)
  - Renal pain [Not Recovered/Not Resolved]
  - Dizziness [Not Recovered/Not Resolved]
  - Dizziness [Not Recovered/Not Resolved]
  - Medication error [Unknown]
